FAERS Safety Report 8444798-4 (Version None)
Quarter: 2012Q2

REPORT INFORMATION
  Report Type: 
  Country: None (occurrence: None)
  Receive Date: 20120323
  Receipt Date: 20110915
  Transmission Date: 20120825
  Serious: Yes (Other)
  Sender: FDA-Public Use
  Company Number: 163-21880-11082184

PATIENT
  Age: 63 Year
  Sex: Male

DRUGS (7)
  1. BACTRIM [Concomitant]
  2. REVLIMID [Suspect]
     Indication: MULTIPLE MYELOMA
     Dosage: 10 MG DAILY X 28 , PO ,  5 MG DAILY X 28 , PO
     Route: 048
     Dates: start: 20110310
  3. REVLIMID [Suspect]
     Indication: MULTIPLE MYELOMA
     Dosage: 10 MG DAILY X 28 , PO ,  5 MG DAILY X 28 , PO
     Route: 048
     Dates: start: 20110817
  4. REVLIMID [Suspect]
     Indication: MULTIPLE MYELOMA
     Dosage: 10 MG DAILY X 28 , PO ,  5 MG DAILY X 28 , PO
     Route: 048
     Dates: start: 20110401
  5. AREDIA [Concomitant]
  6. LISINOPRIL [Concomitant]
  7. ACYCLOVIR  (ACICLOVIR)(UNKNOWN) [Concomitant]

REACTIONS (1)
  - PANCYTOPENIA [None]
